FAERS Safety Report 9478654 (Version 2)
Quarter: 2013Q3

REPORT INFORMATION
  Report Type: Spontaneous
  Country: US (occurrence: None)
  Receive Date: 20130822
  Receipt Date: 20130830
  Transmission Date: 20140515
  Serious: Yes (Other)
  Sender: FDA-Public Use
  Company Number: ACO_37988_2013

PATIENT
  Age: 59 Year
  Sex: Male

DRUGS (14)
  1. AMPYRA (DALFAMPRIDINE) TABLET, 10MG [Suspect]
     Indication: PRODUCT USED FOR UNKNOWN INDICATION
     Dates: start: 20100404
  2. COPAXONE [Concomitant]
  3. BIOTIN [Concomitant]
  4. CALCIUM + VITAMIN D [Concomitant]
  5. FISH OIL [Concomitant]
  6. GRAPE SEED EXTRACT [Concomitant]
  7. BACLOFEN [Concomitant]
  8. GABAPENTIN [Concomitant]
  9. PROPANOLOL [Concomitant]
  10. EFFEXOR [Concomitant]
  11. FLORICET [Concomitant]
  12. LIPITOR [Concomitant]
  13. MIRALAX [Concomitant]
  14. TOPIRAMATE [Concomitant]

REACTIONS (2)
  - Blindness [None]
  - Sensory loss [None]
